FAERS Safety Report 5639492-9 (Version None)
Quarter: 2008Q1

REPORT INFORMATION
  Report Type: 
  Country: None (occurrence: None)
  Receive Date: 20080226
  Receipt Date: 20080214
  Transmission Date: 20080703
  Serious: Yes (Hospitalization, Other)
  Sender: FDA-Public Use
  Company Number: CA-PFIZER INC-2008016239

PATIENT
  Age: 53 Year
  Sex: Female
  Weight: 80 kg

DRUGS (8)
  1. CHANTIX [Suspect]
     Indication: SMOKING CESSATION THERAPY
     Route: 048
  2. ATACAND [Concomitant]
     Route: 048
  3. CRESTOR [Concomitant]
     Route: 048
  4. ATENOLOL [Concomitant]
     Route: 048
     Dates: start: 20070101, end: 20080201
  5. ASPIRIN [Concomitant]
     Route: 048
  6. COD-LIVER OIL [Concomitant]
     Route: 048
  7. NPH INSULIN [Concomitant]
     Dosage: TEXT:30 UNITS EVERY EVENING
  8. INSULIN ZINC SUSPENSION [Concomitant]
     Dosage: TEXT:10 UNITS AT LUNCH AND SUPPER

REACTIONS (1)
  - ANGINA UNSTABLE [None]
